FAERS Safety Report 12136410 (Version 1)
Quarter: 2016Q1

REPORT INFORMATION
  Report Type: Spontaneous
  Country: US (occurrence: US)
  Receive Date: 20160302
  Receipt Date: 20160302
  Transmission Date: 20160526
  Serious: No
  Sender: FDA-Public Use
  Company Number: US-PFIZER INC-2015343879

PATIENT
  Age: 36 Year
  Sex: Female

DRUGS (12)
  1. LYRICA [Suspect]
     Active Substance: PREGABALIN
     Dosage: 400 MG, DAILY (1 TAB BID AND 2 TABS AT NIGHT)
     Dates: start: 20150923
  2. NORCO [Concomitant]
     Active Substance: ACETAMINOPHEN\HYDROCODONE BITARTRATE
     Indication: PAIN
     Dosage: 1 DF, AS NEEDED (HYDROCODONE BITARTRATE 10MG, PARACETAMOL325MG, TAKE 1 TABLET BY MOUTH EVERY 6 HOUR)
     Route: 048
  3. BUTRANS [Concomitant]
     Active Substance: BUPRENORPHINE
     Dosage: 1 DF, WEEKLY (10MC^/HR PATCH, 1PATCH TO SKIN AS DIRECTED EVERY 7 DAYS)
  4. MELATONIN [Concomitant]
     Active Substance: MELATONIN
     Indication: SLEEP DISORDER
     Dosage: 20 MG, 1X/DAY (TAKE BY MOUTH. 2 NIGHTLY FOR SLEEP)
     Route: 048
  5. NAPROSYN [Concomitant]
     Active Substance: NAPROXEN
     Dosage: 500 MG, 2X/DAY (TAKE 1 TABLET (500 MG) BY MOUTH 2 TIMES DAILY WITH MEALS)
     Route: 048
  6. KLONOPIN [Concomitant]
     Active Substance: CLONAZEPAM
     Dosage: 1 MG, 3X/DAY
     Route: 048
  7. LIDEX [Concomitant]
     Active Substance: FLUOCINONIDE
     Dosage: UNK, 2X/DAY (APPLY TO AFFECTED AREA 2 TIMES DAILY)
  8. HYDROCHLOROTHIAZIDE. [Concomitant]
     Active Substance: HYDROCHLOROTHIAZIDE
     Dosage: 25 MG, DAILY
     Route: 048
  9. SYNTHROID [Concomitant]
     Active Substance: LEVOTHYROXINE SODIUM
     Dosage: 137 UG, 1X/DAY (TAKE 1 TABLET BY MOUTH EVERY MORNING)
     Route: 048
  10. CELEXA [Concomitant]
     Active Substance: CITALOPRAM HYDROBROMIDE
     Dosage: 40 MG, DAILY (TAKE 1 TAB BY MOUTH DAILY AT BEDTIME)
     Route: 048
  11. EPIDUO [Concomitant]
     Active Substance: ADAPALENE\BENZOYL PEROXIDE
     Dosage: UNK (APPLY TO AFFECTED AREA)
  12. ROBAXIN-750 [Concomitant]
     Dosage: 750 MG, 3X/DAY
     Route: 048

REACTIONS (1)
  - Pain [Unknown]
